FAERS Safety Report 8839696 (Version 1)
Quarter: 2012Q4

REPORT INFORMATION
  Report Type: Spontaneous
  Country: GB (occurrence: None)
  Receive Date: 20121011
  Receipt Date: 20121011
  Transmission Date: 20130627
  Serious: Yes (Hospitalization)
  Sender: FDA-Public Use
  Company Number: 1445587

PATIENT
  Age: 64 Year
  Sex: Male

DRUGS (6)
  1. FLUDARABINE PHOSPHATE [Suspect]
  2. CYCLOPHOSPHAMID [Suspect]
  3. RITUXIMAB [Suspect]
  4. FLUCONAZOLE [Concomitant]
  5. ACICLOVIR [Concomitant]
  6. CO-TRIMOXAZOLE [Concomitant]

REACTIONS (1)
  - Cytomegalovirus oesophagitis [None]
